FAERS Safety Report 5291929-3 (Version None)
Quarter: 2007Q2

REPORT INFORMATION
  Report Type: 
  Country: None (occurrence: None)
  Receive Date: 20070410
  Receipt Date: 20070326
  Transmission Date: 20071010
  Serious: Yes (Hospitalization)
  Sender: FDA-Public Use
  Company Number: ES-JNJFOC-20070306415

PATIENT
  Age: 24 Year
  Sex: Male

DRUGS (1)
  1. INFLIXIMAB [Suspect]
     Indication: UVEITIS

REACTIONS (5)
  - DYSPNOEA [None]
  - MALAISE [None]
  - MYCOBACTERIAL INFECTION [None]
  - PYREXIA [None]
  - RESPIRATORY FAILURE [None]
